FAERS Safety Report 7553048-2 (Version None)
Quarter: 2011Q2

REPORT INFORMATION
  Report Type: 
  Country: None (occurrence: None)
  Receive Date: 20110616
  Receipt Date: 20110608
  Transmission Date: 20111010
  Serious: No
  Sender: FDA-Public Use
  Company Number: DE-B.I. PHARMACEUTICALS,INC./RIDGEFIELD-2011-DE-03325DE

PATIENT
  Sex: Male
  Weight: 69 kg

DRUGS (3)
  1. ACYCLOVIR [Concomitant]
     Indication: GENITAL HERPES
     Dosage: 400 MG
     Route: 048
     Dates: start: 20091230
  2. TRUVADA [Concomitant]
     Route: 048
     Dates: start: 20091203
  3. VIRAMUNE [Suspect]
     Indication: HIV INFECTION
     Dosage: 400 MG
     Route: 048
     Dates: start: 20091203

REACTIONS (1)
  - ANOGENITAL WARTS [None]
